FAERS Safety Report 8389577-1 (Version None)
Quarter: 2012Q2

REPORT INFORMATION
  Report Type: 
  Country: None (occurrence: None)
  Receive Date: 20120528
  Receipt Date: 20120515
  Transmission Date: 20120825
  Serious: Yes (Death, Hospitalization)
  Sender: FDA-Public Use
  Company Number: US-BAYER-2011-081237

PATIENT
  Sex: Male
  Weight: 71.8 kg

DRUGS (15)
  1. SARGRAMOSTIM [Suspect]
     Indication: MALIGNANT MELANOMA
     Dosage: 250 MCG/D DAYS 1-14
     Route: 058
     Dates: start: 20110715, end: 20110817
  2. MS CONTIN [Concomitant]
     Indication: PAIN
     Dosage: 15 MG, Q12H
     Route: 048
  3. MS CONTIN [Concomitant]
     Dosage: 30 MG, BID
  4. NORCO [Concomitant]
     Indication: PAIN
     Dosage: 10 MG-325 MG, 1 TAB Q4H
     Route: 048
  5. MEGACE [Concomitant]
     Indication: DECREASED APPETITE
     Dosage: 1 TSP, QD
     Dates: start: 20110922
  6. SARGRAMOSTIM [Suspect]
     Dosage: 250 MCG/D DAYS 1-14
     Dates: start: 20110901, end: 20110914
  7. METHYLPHENIDATE [Concomitant]
     Dosage: 1/2 TAB IN AM AND ANOTHER 4 HOURS LATER
     Dates: start: 20110926, end: 20111006
  8. ALLOPURINOL [Concomitant]
     Dosage: 300 MG, QD
     Route: 048
  9. MULTI-VITAMINS [Concomitant]
     Route: 048
  10. MDX-010 [Suspect]
     Indication: MALIGNANT MELANOMA
     Dosage: 807 MG, UNK
     Route: 042
     Dates: start: 20110715, end: 20110804
  11. MDX-010 [Suspect]
     Dosage: 758 MG, UNK
     Dates: start: 20110901, end: 20110901
  12. HYDROMORPHONE HCL [Concomitant]
     Dosage: 1 TAB EVERY 3-6 HOURS AS NEEDED
     Dates: start: 20110922
  13. ZOLPIDEM [Concomitant]
     Dosage: 10 MG, HS
     Route: 048
     Dates: start: 20110816
  14. GUAIFENESIN/CODEINE [Concomitant]
     Indication: COUGH
     Dosage: 10 ML, Q 4 HOURS PRN
     Dates: start: 20110927
  15. GABAPENTIN [Concomitant]
     Indication: PAIN
     Dosage: 300 MG, HS
     Dates: start: 20110926, end: 20111006

REACTIONS (4)
  - FATIGUE [None]
  - MALIGNANT MELANOMA [None]
  - HYPOTENSION [None]
  - EMBOLISM [None]
